FAERS Safety Report 24533829 (Version 1)
Quarter: 2024Q4

REPORT INFORMATION
  Report Type: Report from Study
  Country: GB (occurrence: GB)
  Receive Date: 20241022
  Receipt Date: 20241022
  Transmission Date: 20250115
  Serious: Yes (Other)
  Sender: BAXTER
  Company Number: GB-BAXTER-2024BAX026005

PATIENT
  Sex: Male

DRUGS (3)
  1. SODIUM CHLORIDE [Suspect]
     Active Substance: SODIUM CHLORIDE
     Indication: Vehicle solution use
     Dosage: (4000 MG CEFTRIAXONE IN 100 ML SODIUM CHLORIDE 0.9% INFUSION IN INTERMATE SV200) AT AN UNSPECIFIED D
     Route: 042
     Dates: start: 20241006
  2. CEFTRIAXONE [Suspect]
     Active Substance: CEFTRIAXONE
     Dosage: (4000 MG CEFTRIAXONE IN 100 ML SODIUM CHLORIDE 0.9% INFUSION IN INTERMATE SV200) (2 G VIALS) AT AN U
     Route: 042
     Dates: start: 20241006
  3. UNSPECIFIED INGREDIENT [Suspect]
     Active Substance: UNSPECIFIED INGREDIENT
     Dosage: UNK
     Route: 065

REACTIONS (3)
  - Paraesthesia [Recovering/Resolving]
  - Infusion site pain [Recovering/Resolving]
  - Infusion site discharge [Recovering/Resolving]
